FAERS Safety Report 5599678-9 (Version None)
Quarter: 2008Q1

REPORT INFORMATION
  Report Type: 
  Country: None (occurrence: None)
  Receive Date: 20080123
  Receipt Date: 20080122
  Transmission Date: 20080703
  Serious: No
  Sender: FDA-Public Use
  Company Number: ES-JNJFOC-20071200313

PATIENT
  Sex: Female

DRUGS (4)
  1. ORTHO EVRA [Suspect]
     Indication: CONTRACEPTION
     Route: 062
  2. IBUPOFEN [Concomitant]
     Indication: BRONCHITIS
  3. ANTIBIOTIC [Concomitant]
     Indication: BRONCHITIS
  4. ANTI INFLAMMATORY [Concomitant]
     Indication: BRONCHITIS

REACTIONS (1)
  - THYROID NEOPLASM [None]
